FAERS Safety Report 8398256-6 (Version None)
Quarter: 2012Q2

REPORT INFORMATION
  Report Type: 
  Country: None (occurrence: None)
  Receive Date: 20120531
  Receipt Date: 20120524
  Transmission Date: 20120825
  Serious: Yes (Hospitalization)
  Sender: FDA-Public Use
  Company Number: JP-PURDUE-USA-2012-0087649

PATIENT
  Sex: Male

DRUGS (8)
  1. TRAMADOL HYDROCHLORIDE [Concomitant]
     Dosage: 200 MG, DAILY
     Route: 048
     Dates: start: 20120510, end: 20120513
  2. AMLODINE [Concomitant]
     Indication: PRODUCT USED FOR UNKNOWN INDICATION
  3. TRAMADOL HYDROCHLORIDE [Concomitant]
     Indication: GASTRIC CANCER RECURRENT
     Dosage: 100 MG, DAILY
     Route: 048
     Dates: start: 20120507, end: 20120508
  4. TRAMADOL HYDROCHLORIDE [Concomitant]
     Dosage: 150 MG, DAILY
     Route: 048
     Dates: start: 20120509, end: 20120509
  5. TRAMADOL HCL [Suspect]
     Indication: GASTRIC CANCER RECURRENT
     Dosage: 100 MG, DAILY
     Route: 048
     Dates: start: 20120518, end: 20120520
  6. ACETAMINOPHEN [Concomitant]
     Indication: CANCER PAIN
     Dosage: UNK
     Route: 048
     Dates: start: 20120502, end: 20120520
  7. TRAMADOL HYDROCHLORIDE [Concomitant]
     Dosage: 100 MG, DAILY
     Route: 048
     Dates: start: 20120514, end: 20120517
  8. MICARDIS [Concomitant]
     Indication: PRODUCT USED FOR UNKNOWN INDICATION

REACTIONS (2)
  - HYPOGLYCAEMIA [None]
  - RESPIRATORY DEPRESSION [None]
